FAERS Safety Report 15057642 (Version 1)
Quarter: 2018Q2

REPORT INFORMATION
  Report Type: Spontaneous
  Country: US (occurrence: US)
  Receive Date: 20180625
  Receipt Date: 20180625
  Transmission Date: 20180711
  Serious: No
  Sender: FDA-Public Use
  Company Number: US-B.I. PHARMACEUTICALS,INC./RIDGEFIELD-2018-BI-031770

PATIENT
  Age: 74 Year
  Sex: Female

DRUGS (2)
  1. SPIRIVA [Suspect]
     Active Substance: TIOTROPIUM BROMIDE MONOHYDRATE
     Dosage: 1 CAPSULE 1 TIME DAILY;  FORM STRENGTH: 18 MCG; FORM: CAPSULE? ADMIN? YES ?ACTION: DRUG REDUCED
     Route: 055
     Dates: start: 2011, end: 2011
  2. SPIRIVA [Suspect]
     Active Substance: TIOTROPIUM BROMIDE MONOHYDRATE
     Indication: CHRONIC OBSTRUCTIVE PULMONARY DISEASE
     Dosage: 1 CAPSULE 3 TIMES PER WEEK; STRENGTH: 18 MCG; FORM: CAPSULE? ADMIN? NO ?ACTION: DOSE NOT CHANGED
     Route: 055
     Dates: start: 2011

REACTIONS (2)
  - Incorrect route of drug administration [Recovered/Resolved]
  - Muscle spasms [Recovered/Resolved]

NARRATIVE: CASE EVENT DATE: 2011
